FAERS Safety Report 20460589 (Version 2)
Quarter: 2022Q2

REPORT INFORMATION
  Report Type: Report from Study
  Country: CA (occurrence: CA)
  Receive Date: 20220211
  Receipt Date: 20220615
  Transmission Date: 20220721
  Serious: Yes (Hospitalization, Other)
  Sender: FDA-Public Use
  Company Number: CA-JNJFOC-20200341993

PATIENT
  Age: 65 Year
  Sex: Male
  Weight: 64 kg

DRUGS (3)
  1. REMICADE [Suspect]
     Active Substance: INFLIXIMAB
     Indication: Colitis ulcerative
     Route: 042
     Dates: start: 20180122
  2. REMICADE [Suspect]
     Active Substance: INFLIXIMAB
     Indication: Crohn^s disease
     Route: 042
     Dates: start: 2018
  3. REMICADE [Suspect]
     Active Substance: INFLIXIMAB
     Route: 042
     Dates: end: 20220411

REACTIONS (17)
  - Coronary artery occlusion [Recovering/Resolving]
  - Myocardial infarction [Unknown]
  - Infarction [Unknown]
  - Adverse event [Unknown]
  - Cardiac failure [Unknown]
  - Cardiac disorder [Unknown]
  - Haematochezia [Unknown]
  - Increased appetite [Unknown]
  - COVID-19 [Unknown]
  - Chest pain [Not Recovered/Not Resolved]
  - Palpitations [Unknown]
  - Dyspnoea [Unknown]
  - Abdominal pain [Not Recovered/Not Resolved]
  - Frequent bowel movements [Unknown]
  - Diarrhoea [Unknown]
  - Back pain [Not Recovered/Not Resolved]
  - Drug ineffective [Unknown]

NARRATIVE: CASE EVENT DATE: 20200528
